FAERS Safety Report 21419493 (Version 6)
Quarter: 2022Q4

REPORT INFORMATION
  Report Type: Report from Study
  Country: PL (occurrence: PL)
  Receive Date: 20221006
  Receipt Date: 20221212
  Transmission Date: 20230113
  Serious: Yes (Death, Life-Threatening, Hospitalization, Other)
  Sender: FDA-Public Use
  Company Number: PL-BRISTOL-MYERS SQUIBB COMPANY-2022-085581

PATIENT
  Age: 66 Year
  Sex: Female
  Weight: 70 kg

DRUGS (97)
  1. LENALIDOMIDE [Suspect]
     Active Substance: LENALIDOMIDE
     Indication: Non-Hodgkin^s lymphoma
     Route: 048
     Dates: start: 20220525
  2. LENALIDOMIDE [Suspect]
     Active Substance: LENALIDOMIDE
     Route: 048
     Dates: start: 20220707
  3. LENALIDOMIDE [Suspect]
     Active Substance: LENALIDOMIDE
     Route: 048
     Dates: start: 20220824
  4. LENALIDOMIDE [Suspect]
     Active Substance: LENALIDOMIDE
     Route: 048
     Dates: start: 20220901
  5. MOSUNETUZUMAB [Suspect]
     Active Substance: MOSUNETUZUMAB
     Indication: Non-Hodgkin^s lymphoma
     Route: 042
     Dates: start: 20220405
  6. MOSUNETUZUMAB [Suspect]
     Active Substance: MOSUNETUZUMAB
     Route: 042
     Dates: start: 20220623
  7. MOSUNETUZUMAB [Suspect]
     Active Substance: MOSUNETUZUMAB
     Route: 042
     Dates: start: 20220818
  8. ACETAMINOPHEN [Concomitant]
     Active Substance: ACETAMINOPHEN
     Indication: Pyrexia
     Dosage: 1 IN 1 D
     Route: 042
     Dates: start: 20220405, end: 20220405
  9. ACETAMINOPHEN [Concomitant]
     Active Substance: ACETAMINOPHEN
     Indication: Febrile neutropenia
     Dosage: 2 IN 1 D
     Route: 042
     Dates: start: 20220405, end: 20220411
  10. ACETAMINOPHEN [Concomitant]
     Active Substance: ACETAMINOPHEN
     Dosage: 3 IN 1 D
     Route: 048
     Dates: start: 20220328, end: 20220403
  11. ACETAMINOPHEN [Concomitant]
     Active Substance: ACETAMINOPHEN
     Dosage: 1 IN 1 D
     Route: 042
     Dates: start: 20220623, end: 20220623
  12. ACETAMINOPHEN [Concomitant]
     Active Substance: ACETAMINOPHEN
     Dosage: 2 IN 1 D
     Route: 042
     Dates: start: 20220730, end: 20220730
  13. ACETAMINOPHEN [Concomitant]
     Active Substance: ACETAMINOPHEN
     Route: 042
     Dates: start: 20220801, end: 20220801
  14. ACETAMINOPHEN [Concomitant]
     Active Substance: ACETAMINOPHEN
     Route: 042
     Dates: start: 20220805, end: 20220805
  15. ACETAMINOPHEN [Concomitant]
     Active Substance: ACETAMINOPHEN
     Route: 042
     Dates: start: 20220818, end: 20220818
  16. PLATELETS [Concomitant]
     Active Substance: HUMAN PLATELET, ALLOGENIC
     Indication: Thrombocytopenia
     Dosage: 1 U
     Route: 048
     Dates: start: 20220826
  17. PLATELETS [Concomitant]
     Active Substance: HUMAN PLATELET, ALLOGENIC
     Dosage: 1 U
     Route: 065
     Dates: start: 20220825
  18. PLATELETS [Concomitant]
     Active Substance: HUMAN PLATELET, ALLOGENIC
     Dosage: 1 IN 1 D
     Route: 042
     Dates: start: 20220405, end: 20220405
  19. PLATELETS [Concomitant]
     Active Substance: HUMAN PLATELET, ALLOGENIC
     Dosage: 1 U
     Route: 042
     Dates: start: 20220410
  20. PLATELETS [Concomitant]
     Active Substance: HUMAN PLATELET, ALLOGENIC
     Dosage: 1U
     Route: 042
     Dates: start: 20220403
  21. PLATELETS [Concomitant]
     Active Substance: HUMAN PLATELET, ALLOGENIC
     Dosage: 1U
     Route: 065
     Dates: start: 20220812
  22. BISEPTOL [Concomitant]
     Active Substance: SULFAMETHOXAZOLE\TRIMETHOPRIM
     Indication: Infection prophylaxis
     Dosage: 3 IN 1 WK
     Route: 048
     Dates: start: 20220404
  23. METOPROLOL TARTRATE [Concomitant]
     Active Substance: METOPROLOL TARTRATE
     Indication: Tachycardia
     Dosage: 2 IN 1 D
     Route: 048
     Dates: start: 20220421, end: 20220707
  24. METOPROLOL TARTRATE [Concomitant]
     Active Substance: METOPROLOL TARTRATE
     Dosage: 2 IN 1 D
     Route: 048
     Dates: start: 20220720, end: 20220729
  25. ENOXAPARIN SODIUM [Concomitant]
     Active Substance: ENOXAPARIN SODIUM
     Indication: Prophylaxis
     Dosage: 1 IN 1 D
     Route: 058
     Dates: start: 20220525, end: 20220808
  26. ENOXAPARIN SODIUM [Concomitant]
     Active Substance: ENOXAPARIN SODIUM
     Dosage: 1 IN 1 D
     Route: 058
     Dates: start: 20220801
  27. MEROPENEM [Concomitant]
     Active Substance: MEROPENEM
     Indication: Febrile neutropenia
     Dosage: 1 IN 3 D
     Route: 042
     Dates: start: 20220729, end: 20220811
  28. DEMEZON [Concomitant]
     Indication: Febrile neutropenia
     Dosage: 1 IN 1 D
     Route: 042
     Dates: start: 20220802, end: 20220805
  29. DEMEZON [Concomitant]
     Dosage: 1 IN 1 D
     Route: 042
     Dates: start: 20220806, end: 20220811
  30. DEMEZON [Concomitant]
  31. VANCOMYCIN [Concomitant]
     Active Substance: VANCOMYCIN
     Indication: Febrile neutropenia
     Dosage: 2 IN 1 D
     Route: 042
     Dates: start: 20220809, end: 20220817
  32. HYDROXYZINE HYDROCHLORIDE [Concomitant]
     Active Substance: HYDROXYZINE HYDROCHLORIDE
     Indication: Insomnia
     Dosage: 1 IN 1 D
     Route: 048
     Dates: start: 20220814, end: 20220817
  33. HASCOVIR [Concomitant]
     Dosage: 2 IN 1 D
     Route: 048
     Dates: start: 20210824
  34. HASCOVIR [Concomitant]
     Indication: Product used for unknown indication
  35. ESCITAL [Concomitant]
     Indication: Depression
     Dosage: 1 IN 1 D
     Route: 048
     Dates: start: 20220624
  36. ALLOPURINOL [Concomitant]
     Active Substance: ALLOPURINOL
     Indication: Product used for unknown indication
     Dosage: 1 IN 1 D
     Route: 048
     Dates: start: 20220407
  37. ALLOPURINOL [Concomitant]
     Active Substance: ALLOPURINOL
     Dosage: 1 IN 1 D
     Route: 042
     Dates: start: 20220404, end: 20220404
  38. ALLOPURINOL [Concomitant]
     Active Substance: ALLOPURINOL
     Dosage: 1 IN 1 D
     Route: 048
     Dates: start: 20220407, end: 20220407
  39. ALLOPURINOL [Concomitant]
     Active Substance: ALLOPURINOL
     Dosage: 2 IN 1 D
     Route: 048
     Dates: start: 20220405, end: 20220405
  40. ALLOPURINOL [Concomitant]
     Active Substance: ALLOPURINOL
     Indication: Product used for unknown indication
     Dosage: 1 IN 1 D
     Route: 048
     Dates: start: 20210824, end: 20220404
  41. DEPRATAL [Concomitant]
     Indication: Depression
     Dosage: 1 IN 1 D
     Route: 048
     Dates: start: 20211102, end: 20220624
  42. METAMIZOLE [Concomitant]
     Active Substance: METAMIZOLE
     Indication: Pyrexia
     Dosage: 1 IN 1 D
     Route: 042
     Dates: start: 20220405, end: 20220405
  43. HUMAN PLASMA [Concomitant]
     Active Substance: HUMAN PLASMA
     Indication: Product used for unknown indication
     Dosage: 1 U
     Route: 065
     Dates: start: 20220410
  44. FUROSEMIDE [Concomitant]
     Active Substance: FUROSEMIDE
     Indication: Product used for unknown indication
     Dosage: 1 IN 1 D
     Route: 042
     Dates: start: 20220404, end: 20220412
  45. HUMAN ALBUMIN 20% BEHRING [Concomitant]
     Indication: Hypoalbuminaemia
     Dosage: 1 IN 1 D
     Route: 042
     Dates: start: 20220407, end: 20220411
  46. POTASSIUM CHLORIDE [Concomitant]
     Active Substance: POTASSIUM CHLORIDE
     Indication: Product used for unknown indication
     Dosage: 2 IN 1 D
     Route: 048
     Dates: start: 20220405, end: 20220414
  47. CARBOHYDRATES\FATTY ACIDS\MINERALS\PROTEIN\VITAMINS [Concomitant]
     Active Substance: CARBOHYDRATES\FATTY ACIDS\MINERALS\PROTEIN\VITAMINS
     Indication: Product used for unknown indication
     Dosage: 1 IN 1 D
     Route: 048
     Dates: start: 20220407, end: 20220414
  48. DEXAMETHASONE [Concomitant]
     Active Substance: DEXAMETHASONE
     Indication: Product used for unknown indication
     Dosage: 1 IN 1 D
     Route: 042
     Dates: start: 20220405, end: 20220405
  49. DEXAMETHASONE [Concomitant]
     Active Substance: DEXAMETHASONE
     Route: 042
     Dates: start: 20220623, end: 20220623
  50. DEXAMETHASONE [Concomitant]
     Active Substance: DEXAMETHASONE
     Route: 042
     Dates: start: 20220818, end: 20220818
  51. CLEMASTINUM [CLEMASTINE] [Concomitant]
     Indication: Product used for unknown indication
     Dosage: 1 IN 1 D
     Route: 042
     Dates: start: 20220405, end: 20220405
  52. CLEMASTINUM [CLEMASTINE] [Concomitant]
     Route: 042
     Dates: start: 20220623, end: 20220623
  53. CLEMASTINUM [CLEMASTINE] [Concomitant]
     Route: 042
     Dates: start: 20220818, end: 20220818
  54. CLEMASTINUM [CLEMASTINE] [Concomitant]
     Route: 042
     Dates: start: 20220805, end: 20220805
  55. HUMAN RED BLOOD CELL [Concomitant]
     Active Substance: HUMAN RED BLOOD CELL
     Indication: Product used for unknown indication
     Dosage: 2U
     Route: 065
     Dates: start: 20220409
  56. HUMAN RED BLOOD CELL [Concomitant]
     Active Substance: HUMAN RED BLOOD CELL
     Dosage: 1 U
     Route: 065
     Dates: start: 20220428
  57. HUMAN RED BLOOD CELL [Concomitant]
     Active Substance: HUMAN RED BLOOD CELL
     Dosage: 2U
     Dates: start: 20220819
  58. HUMAN RED BLOOD CELL [Concomitant]
     Active Substance: HUMAN RED BLOOD CELL
     Dosage: 2U
     Dates: start: 20220402
  59. HUMAN RED BLOOD CELL [Concomitant]
     Active Substance: HUMAN RED BLOOD CELL
     Dosage: 1U
     Dates: start: 20220818
  60. HUMAN RED BLOOD CELL [Concomitant]
     Active Substance: HUMAN RED BLOOD CELL
     Dosage: 1 U
     Dates: start: 20220709
  61. HUMAN RED BLOOD CELL [Concomitant]
     Active Substance: HUMAN RED BLOOD CELL
     Dosage: 1 U
     Dates: start: 20220730
  62. HUMAN RED BLOOD CELL [Concomitant]
     Active Substance: HUMAN RED BLOOD CELL
     Dosage: 1 U
     Route: 065
     Dates: start: 20220804
  63. HUMAN RED BLOOD CELL [Concomitant]
     Active Substance: HUMAN RED BLOOD CELL
     Dosage: 1 U
     Route: 065
     Dates: start: 20220805
  64. HUMAN RED BLOOD CELL [Concomitant]
     Active Substance: HUMAN RED BLOOD CELL
     Dosage: 1 U
     Route: 065
     Dates: start: 20220816
  65. HUMAN RED BLOOD CELL [Concomitant]
     Active Substance: HUMAN RED BLOOD CELL
     Dosage: 1U
     Route: 065
     Dates: start: 20220731
  66. HUMAN RED BLOOD CELL [Concomitant]
     Active Substance: HUMAN RED BLOOD CELL
     Dosage: 1U
     Route: 065
     Dates: start: 20220826
  67. HUMAN RED BLOOD CELL [Concomitant]
     Active Substance: HUMAN RED BLOOD CELL
     Dosage: 1U
     Route: 065
     Dates: start: 20220827
  68. HUMAN RED BLOOD CELL [Concomitant]
     Active Substance: HUMAN RED BLOOD CELL
     Dosage: 1 U
     Route: 065
     Dates: start: 20220909
  69. HUMAN RED BLOOD CELL [Concomitant]
     Active Substance: HUMAN RED BLOOD CELL
     Dosage: 1 U
     Route: 065
     Dates: start: 20220903
  70. HUMAN RED BLOOD CELL [Concomitant]
     Active Substance: HUMAN RED BLOOD CELL
     Dosage: 1 U
     Route: 065
     Dates: start: 20220905
  71. HUMAN RED BLOOD CELL [Concomitant]
     Active Substance: HUMAN RED BLOOD CELL
     Dosage: 1 U
     Route: 065
     Dates: start: 20220908
  72. HUMAN RED BLOOD CELL [Concomitant]
     Active Substance: HUMAN RED BLOOD CELL
     Dosage: 1 U
     Route: 065
     Dates: start: 20220912
  73. HUMAN PLASMA [Concomitant]
     Active Substance: HUMAN PLASMA
     Indication: Product used for unknown indication
     Dosage: 1 U
     Route: 042
     Dates: start: 20220410
  74. POTASSIUM CHLORIDE [Concomitant]
     Active Substance: POTASSIUM CHLORIDE
     Indication: Product used for unknown indication
     Dosage: 1 IN 1 D
     Route: 042
     Dates: start: 20220405, end: 20220405
  75. POTASSIUM CHLORIDE [Concomitant]
     Active Substance: POTASSIUM CHLORIDE
     Dosage: 1 IN 1 D
     Route: 042
     Dates: start: 20220714
  76. SOLU-MEDROL [Concomitant]
     Active Substance: METHYLPREDNISOLONE SODIUM SUCCINATE
     Indication: Product used for unknown indication
     Dosage: 1 IN 1 D
     Route: 042
     Dates: start: 20220816
  77. PROPRANOLOL [Concomitant]
     Active Substance: PROPRANOLOL HYDROCHLORIDE
     Indication: Tachycardia
     Dosage: 3 IN 1 D
     Route: 048
     Dates: start: 20220708
  78. FILGRASTIM [Concomitant]
     Active Substance: FILGRASTIM
     Indication: Febrile neutropenia
     Dosage: 0.3 GRAMS 1 IN 1 D
     Route: 042
     Dates: start: 20220729, end: 20220803
  79. THIOCODIN [Concomitant]
     Indication: COVID-19
     Dosage: 2 DF, 1 IN 1 D
     Route: 048
     Dates: start: 20220729, end: 20220806
  80. MOZARIN [Concomitant]
     Indication: Depression
     Route: 048
     Dates: start: 20220730, end: 20220819
  81. LEVOFLOXACIN [Concomitant]
     Active Substance: LEVOFLOXACIN
     Indication: Febrile neutropenia
     Route: 042
     Dates: start: 20220801, end: 20220817
  82. PYRALGIN [Concomitant]
     Indication: Febrile neutropenia
     Route: 042
     Dates: start: 20220730, end: 20220731
  83. PYRALGIN [Concomitant]
     Route: 042
     Dates: end: 20220807
  84. LOPERAMIDE [Concomitant]
     Active Substance: LOPERAMIDE
     Indication: Prophylaxis against diarrhoea
     Dosage: 2 DF,1 IN 1 D
     Route: 048
     Dates: start: 20220815, end: 20220815
  85. LOPERAMIDE [Concomitant]
     Active Substance: LOPERAMIDE
     Dosage: 2 DF,1 IN 1 D
     Route: 048
     Dates: start: 20220825, end: 20220825
  86. LOPERAMIDE [Concomitant]
     Active Substance: LOPERAMIDE
     Dosage: 2 DF,1 IN 1 D
     Dates: start: 20220804, end: 20220804
  87. LOPERAMIDE [Concomitant]
     Active Substance: LOPERAMIDE
     Dosage: 1 DF,1 IN 1 D
     Route: 048
     Dates: start: 20220818, end: 20220818
  88. LOPERAMIDE [Concomitant]
     Active Substance: LOPERAMIDE
     Dosage: 2 MG,2 IN 1 D
     Route: 048
     Dates: start: 20220818, end: 20220819
  89. ESTAZOLAM [Concomitant]
     Active Substance: ESTAZOLAM
     Indication: Insomnia
     Route: 048
     Dates: start: 20220812, end: 20220812
  90. NYSTATYNA [Concomitant]
     Indication: Depression
     Route: 061
     Dates: start: 20220802, end: 20220818
  91. NYSTATYNA [Concomitant]
     Route: 061
     Dates: start: 20220818, end: 20220819
  92. CORHYDRON [Concomitant]
     Indication: Depression
     Route: 042
     Dates: start: 20220805, end: 20220805
  93. HYQVIA [Concomitant]
     Active Substance: HUMAN IMMUNOGLOBULIN G\HYALURONIDASE RECOMBINANT HUMAN
     Indication: Hypogammaglobulinaemia
     Route: 058
     Dates: start: 20220805, end: 20220805
  94. AFLEGAN [Concomitant]
     Indication: COVID-19
     Dosage: 1 IN 1 D
     Route: 042
     Dates: start: 20220711, end: 20220712
  95. POTASSIUM CHLORIDE [Concomitant]
     Active Substance: POTASSIUM CHLORIDE
     Indication: Product used for unknown indication
     Dosage: 1 IN 1 D
     Route: 048
     Dates: start: 20220714, end: 20220718
  96. VEKLURY [Concomitant]
     Active Substance: REMDESIVIR
     Indication: COVID-19
     Route: 042
     Dates: start: 20220709, end: 20220712
  97. VEKLURY [Concomitant]
     Active Substance: REMDESIVIR
     Route: 042
     Dates: start: 20220708, end: 20220708

REACTIONS (7)
  - Death [Fatal]
  - Thrombocytopenia [Not Recovered/Not Resolved]
  - Anaemia [Not Recovered/Not Resolved]
  - Bacteraemia [Recovered/Resolved]
  - Neutropenia [Recovered/Resolved]
  - Febrile neutropenia [Recovering/Resolving]
  - General physical health deterioration [Recovered/Resolved]

NARRATIVE: CASE EVENT DATE: 20220406
